FAERS Safety Report 20038593 (Version 1)
Quarter: 2021Q4

REPORT INFORMATION
  Report Type: Spontaneous
  Country: CA (occurrence: CA)
  Receive Date: 20211105
  Receipt Date: 20211105
  Transmission Date: 20220303
  Serious: Yes (Hospitalization, Other)
  Sender: FDA-Public Use
  Company Number: CA-TEVA-2021-CA-1971918

PATIENT
  Age: 9 Year
  Sex: Male

DRUGS (6)
  1. METHYLPREDNISOLONE [Suspect]
     Active Substance: METHYLPREDNISOLONE
     Indication: Salvage therapy
     Dosage: 100 MILLIGRAM DAILY;
     Route: 065
  2. VINORELBINE [Suspect]
     Active Substance: VINORELBINE TARTRATE
     Indication: Salvage therapy
     Route: 065
  3. GEMCITABINE [Suspect]
     Active Substance: GEMCITABINE
     Indication: Salvage therapy
     Dosage: 800 MG/M2 DAILY;
     Route: 042
  4. IFOSFAMIDE [Suspect]
     Active Substance: IFOSFAMIDE
     Indication: Salvage therapy
     Dosage: 2000 MG/M2 DAILY;
     Route: 065
  5. FILGRASTIM [Concomitant]
     Active Substance: FILGRASTIM
     Indication: Supportive care
     Route: 065
  6. MESNA [Concomitant]
     Active Substance: MESNA
     Indication: Supportive care
     Dosage: 2000 MG/M2 DAILY;
     Route: 065

REACTIONS (1)
  - Neutropenia [Unknown]
